FAERS Safety Report 8999492 (Version 3)
Quarter: 2013Q3

REPORT INFORMATION
  Report Type: Spontaneous
  Country: IT (occurrence: IT)
  Receive Date: 20130103
  Receipt Date: 20130708
  Transmission Date: 20140515
  Serious: Yes (Hospitalization)
  Sender: FDA-Public Use
  Company Number: IT-ROCHE-1173313

PATIENT
  Age: 6 Year
  Sex: Female

DRUGS (3)
  1. ROCEFIN [Suspect]
     Indication: ESCHERICHIA URINARY TRACT INFECTION
     Route: 042
     Dates: start: 20121122, end: 20121204
  2. ORAXIM (ITALY) [Suspect]
     Indication: OTITIS MEDIA
     Route: 048
     Dates: start: 20121112, end: 20121114
  3. AUGMENTIN [Suspect]
     Indication: OTITIS MEDIA
     Route: 048
     Dates: start: 20121114, end: 20121120

REACTIONS (3)
  - Benign intracranial hypertension [Recovering/Resolving]
  - Papilloedema [Not Recovered/Not Resolved]
  - Strabismus [Recovering/Resolving]
